FAERS Safety Report 4569408-8 (Version None)
Quarter: 2005Q1

REPORT INFORMATION
  Report Type: 
  Country: None (occurrence: None)
  Receive Date: 20050203
  Receipt Date: 20050128
  Transmission Date: 20050727
  Serious: Yes (Disabling, Other)
  Sender: FDA-Public Use
  Company Number: GB-BRISTOL-MYERS SQUIBB COMPANY-12840740

PATIENT
  Age: 54 Year
  Sex: Male
  Weight: 88 kg

DRUGS (4)
  1. IRBESARTAN [Suspect]
     Indication: ESSENTIAL HYPERTENSION
     Dosage: 1 TO BE TAKEN AT NIGHT
     Route: 048
     Dates: start: 20041109, end: 20050125
  2. ADIZEM-XL [Concomitant]
     Dates: start: 20041019
  3. CODEINE PHOSPHATE [Concomitant]
     Dosage: 1 OR 2 TO BE TAKEN 4 X'S DAILY
     Dates: start: 20050106
  4. BENDROFLUMETHIAZIDE [Concomitant]
     Dosage: 13-DEC-04:1 EACH MORNING; 06-JAN-2005: 1 CM.
     Dates: start: 20041213

REACTIONS (2)
  - LIVER FUNCTION TEST ABNORMAL [None]
  - MALAISE [None]
